FAERS Safety Report 16695455 (Version 1)
Quarter: 2019Q3

REPORT INFORMATION
  Report Type: Spontaneous
  Country: BR (occurrence: BR)
  Receive Date: 20190813
  Receipt Date: 20190813
  Transmission Date: 20191004
  Serious: Yes (Death, Other)
  Sender: FDA-Public Use
  Company Number: BR-TEVA-2019-BR-1090798

PATIENT
  Age: 6 Year
  Sex: Female

DRUGS (14)
  1. CYCLOSPHOSPHAMIDE [Concomitant]
     Active Substance: CYCLOPHOSPHAMIDE
     Indication: NON-HODGKIN^S LYMPHOMA
     Route: 065
  2. VINCRISTINE [Concomitant]
     Active Substance: VINCRISTINE
     Indication: B-CELL LYMPHOMA
  3. TENIPOSIDE. [Concomitant]
     Active Substance: TENIPOSIDE
     Indication: NON-HODGKIN^S LYMPHOMA
     Dosage: TENIPOSIDE (VM-26)
     Route: 065
  4. TENIPOSIDE. [Concomitant]
     Active Substance: TENIPOSIDE
     Indication: B-CELL LYMPHOMA
  5. METHOTREXATE. [Suspect]
     Active Substance: METHOTREXATE
     Indication: NON-HODGKIN^S LYMPHOMA
     Dosage: HIGH DOSE
     Route: 042
  6. METHOTREXATE. [Suspect]
     Active Substance: METHOTREXATE
     Indication: B-CELL LYMPHOMA
     Dosage: HIGH DOSE
     Route: 037
  7. LEUCOVORIN. [Concomitant]
     Active Substance: LEUCOVORIN
     Indication: NON-HODGKIN^S LYMPHOMA
     Route: 065
  8. VINCRISTINE [Concomitant]
     Active Substance: VINCRISTINE
     Indication: NON-HODGKIN^S LYMPHOMA
     Route: 065
  9. LEUCOVORIN. [Concomitant]
     Active Substance: LEUCOVORIN
     Indication: B-CELL LYMPHOMA
  10. CYCLOSPHOSPHAMIDE [Concomitant]
     Active Substance: CYCLOPHOSPHAMIDE
     Indication: B-CELL LYMPHOMA
  11. PREDNISONE. [Concomitant]
     Active Substance: PREDNISONE
     Indication: NON-HODGKIN^S LYMPHOMA
     Route: 065
  12. CYTOSINE ARABINOSIDE (ARA-C) [Concomitant]
     Active Substance: CYTARABINE
     Indication: NON-HODGKIN^S LYMPHOMA
     Route: 065
  13. PREDNISONE. [Concomitant]
     Active Substance: PREDNISONE
     Indication: B-CELL LYMPHOMA
  14. CYTOSINE ARABINOSIDE (ARA-C) [Concomitant]
     Active Substance: CYTARABINE
     Indication: B-CELL LYMPHOMA

REACTIONS (5)
  - Demyelination [Fatal]
  - Coma [Fatal]
  - Facial paralysis [Not Recovered/Not Resolved]
  - Hemiparesis [Not Recovered/Not Resolved]
  - Leukoencephalopathy [Fatal]
